FAERS Safety Report 16032190 (Version 1)
Quarter: 2019Q1

REPORT INFORMATION
  Report Type: Spontaneous
  Country: CO (occurrence: CO)
  Receive Date: 20190304
  Receipt Date: 20190304
  Transmission Date: 20190418
  Serious: Yes (Other)
  Sender: FDA-Public Use
  Company Number: CO-BIOGEN-2019BI00703184

PATIENT
  Sex: Male

DRUGS (5)
  1. NUSINERSEN [Suspect]
     Active Substance: NUSINERSEN
     Dosage: DAY 14
     Route: 065
  2. NUSINERSEN [Suspect]
     Active Substance: NUSINERSEN
     Dosage: DAY 28
     Route: 065
  3. NUSINERSEN [Suspect]
     Active Substance: NUSINERSEN
     Route: 065
  4. NUSINERSEN [Suspect]
     Active Substance: NUSINERSEN
     Dosage: DAY 63
     Route: 065
  5. NUSINERSEN [Suspect]
     Active Substance: NUSINERSEN
     Indication: SPINAL MUSCULAR ATROPHY
     Dosage: DAY 0
     Route: 065
     Dates: start: 20180518

REACTIONS (2)
  - Proteinuria [Unknown]
  - Drug ineffective [Unknown]
